FAERS Safety Report 5987710-X (Version None)
Quarter: 2008Q4

REPORT INFORMATION
  Report Type: 
  Country: None (occurrence: None)
  Receive Date: 20081209
  Receipt Date: 20081203
  Transmission Date: 20090506
  Serious: Yes (Life-Threatening, Hospitalization, Other)
  Sender: FDA-Public Use
  Company Number: IT-ROXANE LABORATORIES, INC.-2008-RO-00329RO

PATIENT
  Age: 38 Year
  Sex: Female

DRUGS (8)
  1. PREDNISONE TAB [Suspect]
  2. WARFARIN SODIUM [Suspect]
  3. METHYLPREDNISOLONE 16MG TAB [Concomitant]
     Indication: ANTIPHOSPHOLIPID SYNDROME
  4. ANTIBIOTIC THERAPY [Concomitant]
     Indication: ANTIPHOSPHOLIPID SYNDROME
  5. HEPARIN [Concomitant]
     Indication: ANTIPHOSPHOLIPID SYNDROME
     Route: 042
  6. OXYGEN [Concomitant]
     Indication: ANTIPHOSPHOLIPID SYNDROME
  7. ASPIRIN [Concomitant]
  8. ENOXAPARIN SODIUM [Concomitant]

REACTIONS (3)
  - ANTIPHOSPHOLIPID SYNDROME [None]
  - SEPSIS [None]
  - SUBCUTANEOUS ABSCESS [None]
